FAERS Safety Report 17832386 (Version 4)
Quarter: 2020Q2

REPORT INFORMATION
  Report Type: Spontaneous
  Country: US (occurrence: US)
  Receive Date: 20200528
  Receipt Date: 20200616
  Transmission Date: 20200714
  Serious: No
  Sender: FDA-Public Use
  Company Number: US-BIOGEN-2020BI00879262

PATIENT
  Age: 33 Year
  Sex: Male

DRUGS (2)
  1. TECFIDERA [Suspect]
     Active Substance: DIMETHYL FUMARATE
     Indication: MULTIPLE SCLEROSIS
     Route: 048
     Dates: start: 20200515
  2. TECFIDERA [Suspect]
     Active Substance: DIMETHYL FUMARATE
     Route: 048
     Dates: start: 20200507

REACTIONS (7)
  - Flushing [Not Recovered/Not Resolved]
  - Nausea [Unknown]
  - Product dose omission [Recovered/Resolved]
  - Balance disorder [Unknown]
  - Fatigue [Unknown]
  - Tinnitus [Unknown]
  - Muscle tightness [Recovered/Resolved]

NARRATIVE: CASE EVENT DATE: 20200513
